FAERS Safety Report 12586418 (Version 1)
Quarter: 2016Q3

REPORT INFORMATION
  Report Type: Spontaneous
  Country: CH (occurrence: CH)
  Receive Date: 20160725
  Receipt Date: 20160725
  Transmission Date: 20161109
  Serious: Yes (Other)
  Sender: FDA-Public Use
  Company Number: CH-ROCHE-1799642

PATIENT
  Age: 81 Year
  Sex: Female

DRUGS (4)
  1. RANIBIZUMAB [Suspect]
     Active Substance: RANIBIZUMAB
     Indication: NEOVASCULAR AGE-RELATED MACULAR DEGENERATION
     Dosage: 21 RANIBIZUMAB INJECTIONS
     Route: 050
  2. RANIBIZUMAB [Suspect]
     Active Substance: RANIBIZUMAB
     Indication: CHOROIDAL NEOVASCULARISATION
     Route: 050
  3. AFLIBERCEPT [Suspect]
     Active Substance: AFLIBERCEPT
     Indication: CHOROIDAL NEOVASCULARISATION
  4. AFLIBERCEPT [Suspect]
     Active Substance: AFLIBERCEPT
     Indication: NEOVASCULAR AGE-RELATED MACULAR DEGENERATION
     Dosage: 24 AFLIBERCEPT INJECTION
     Route: 050

REACTIONS (2)
  - Choroidal haemangioma [Unknown]
  - Macular degeneration [Unknown]
